FAERS Safety Report 8852477 (Version 1)
Quarter: 2012Q4

REPORT INFORMATION
  Report Type: 
  Country: US (occurrence: US)
  Receive Date: 20121022
  Receipt Date: 20121022
  Transmission Date: 20130627
  Serious: No
  Sender: FDA-Public Use
  Company Number: US-BAYER-2012-110087

PATIENT
  Age: 84 Year
  Sex: Female

DRUGS (4)
  1. ALEVE GELCAP [Suspect]
     Indication: ANALGESIC THERAPY
     Dosage: Other Frequency
     Route: 048
     Dates: start: 20120925, end: 20121008
  2. PLAVIX [Concomitant]
  3. LISINOPRIL [Concomitant]
  4. VITAMINS [Concomitant]

REACTIONS (1)
  - Pain [Recovered/Resolved]
